FAERS Safety Report 7244859-1 (Version None)
Quarter: 2011Q1

REPORT INFORMATION
  Report Type: 
  Country: None (occurrence: None)
  Receive Date: 20110126
  Receipt Date: 20110124
  Transmission Date: 20110831
  Serious: No
  Sender: FDA-Public Use
  Company Number: US-PFIZER INC-2011017073

PATIENT
  Sex: Male

DRUGS (1)
  1. XANAX [Suspect]
     Indication: PANIC DISORDER
     Dosage: UNK

REACTIONS (6)
  - INCORRECT DOSE ADMINISTERED [None]
  - DRUG INEFFECTIVE [None]
  - INSOMNIA [None]
  - STRESS [None]
  - SOMNOLENCE [None]
  - PHARYNGITIS [None]
